FAERS Safety Report 5256754-8 (Version None)
Quarter: 2007Q1

REPORT INFORMATION
  Report Type: 
  Country: None (occurrence: None)
  Receive Date: 20070306
  Receipt Date: 20070222
  Transmission Date: 20070707
  Serious: Yes (Other)
  Sender: FDA-Public Use
  Company Number: IE-PFIZER INC-2007015205

PATIENT
  Age: 19 Year
  Sex: Female

DRUGS (2)
  1. DEPO-PROVERA [Suspect]
     Indication: CONTRACEPTION
     Route: 030
     Dates: start: 20061110, end: 20061110
  2. CLAVAMEL [Concomitant]

REACTIONS (3)
  - DRUG INEFFECTIVE [None]
  - INTRA-UTERINE DEATH [None]
  - UNINTENDED PREGNANCY [None]
